FAERS Safety Report 7986399-8 (Version None)
Quarter: 2011Q4

REPORT INFORMATION
  Report Type: 
  Country: None (occurrence: None)
  Receive Date: 20111216
  Receipt Date: 20110812
  Transmission Date: 20120403
  Serious: No
  Sender: FDA-Public Use
  Company Number: US-GLAXOSMITHKLINE-A0940908A

PATIENT
  Age: 65 Year
  Sex: Female

DRUGS (16)
  1. COREG CR [Suspect]
     Indication: CARDIAC DISORDER
     Dosage: 40MG PER DAY
     Route: 048
     Dates: start: 20110808
  2. SPIRONOLACTONE [Concomitant]
  3. ADVAIR DISKUS 100/50 [Concomitant]
  4. SPIRIVA [Concomitant]
  5. FISH OIL [Concomitant]
  6. FOLIC ACID [Concomitant]
  7. PRAVASTATIN [Concomitant]
  8. NEXIUM [Concomitant]
  9. UNKNOWN MEDICATION [Concomitant]
  10. DIAVAN [Concomitant]
  11. ASPIRIN [Concomitant]
  12. PREDNISONE [Concomitant]
  13. LASIX [Concomitant]
  14. ALLOPURINOL [Concomitant]
  15. CO Q 10 [Concomitant]
  16. VITAMIN D [Concomitant]

REACTIONS (3)
  - ABDOMINAL DISCOMFORT [None]
  - DIARRHOEA [None]
  - DECREASED APPETITE [None]
